APPROVED DRUG PRODUCT: FINASTERIDE
Active Ingredient: FINASTERIDE
Strength: 5MG
Dosage Form/Route: TABLET;ORAL
Application: A076437 | Product #001 | TE Code: AB
Applicant: DR REDDYS LABORATORIES LTD
Approved: Feb 28, 2007 | RLD: No | RS: No | Type: RX